FAERS Safety Report 16105979 (Version 3)
Quarter: 2020Q2

REPORT INFORMATION
  Report Type: Spontaneous
  Country: US (occurrence: US)
  Receive Date: 20190322
  Receipt Date: 20200424
  Transmission Date: 20200713
  Serious: No
  Sender: FDA-Public Use
  Company Number: US-SA-2019SA072214

PATIENT
  Age: 24 Year
  Sex: Female

DRUGS (3)
  1. VITAMIN D3 [Concomitant]
     Active Substance: CHOLECALCIFEROL
     Dosage: 100000/G POWDER
  2. BENADRYL ALLERGY [CETIRIZINE HYDROCHLORIDE] [Concomitant]
     Active Substance: CETIRIZINE HYDROCHLORIDE
  3. DUPIXENT [Suspect]
     Active Substance: DUPILUMAB
     Indication: DERMATITIS ATOPIC
     Dosage: 300 MG, QOW
     Route: 058
     Dates: start: 20190215

REACTIONS (6)
  - Rash [Unknown]
  - Conjunctivitis [Unknown]
  - Product storage error [Unknown]
  - Pruritus [Unknown]
  - Ocular hyperaemia [Unknown]
  - Urticaria [Unknown]

NARRATIVE: CASE EVENT DATE: 20190227
